FAERS Safety Report 17113644 (Version 1)
Quarter: 2019Q4

REPORT INFORMATION
  Report Type: Spontaneous
  Country: US (occurrence: US)
  Receive Date: 20191205
  Receipt Date: 20191205
  Transmission Date: 20200122
  Serious: Yes (Other)
  Sender: FDA-Public Use
  Company Number: US-TEVA-2019-US-1145115

PATIENT
  Age: 39 Year
  Sex: Female

DRUGS (1)
  1. PROAIR HFA [Suspect]
     Active Substance: ALBUTEROL SULFATE
     Indication: ASTHMA
     Dosage: DOSAGE 1 INHALATION.
     Route: 065

REACTIONS (4)
  - Bronchospasm [Unknown]
  - Adverse event [Unknown]
  - Nasopharyngitis [Unknown]
  - Cough [Unknown]
